FAERS Safety Report 8050538-3 (Version None)
Quarter: 2012Q1

REPORT INFORMATION
  Report Type: 
  Country: None (occurrence: None)
  Receive Date: 20120103
  Receipt Date: 20111220
  Transmission Date: 20120608
  Serious: Yes (Other)
  Sender: FDA-Public Use
  Company Number: 2011028057

PATIENT
  Age: 55 Year
  Sex: Female
  Weight: 119.7496 kg

DRUGS (21)
  1. HIZENTRA [Suspect]
     Indication: IMMUNODEFICIENCY COMMON VARIABLE
     Dosage: SEE IMAGE
     Route: 058
     Dates: start: 20110203
  2. HIZENTRA [Suspect]
     Indication: IMMUNODEFICIENCY COMMON VARIABLE
     Dosage: SEE IMAGE
     Route: 058
     Dates: start: 20110304
  3. HIZENTRA [Suspect]
     Indication: IMMUNODEFICIENCY COMMON VARIABLE
     Dosage: SEE IMAGE
     Route: 058
     Dates: start: 20110203
  4. HIZENTRA [Suspect]
  5. XANAX [Concomitant]
  6. ZYRTEC [Concomitant]
  7. ADVAOR (SERETIDE  /01420901/) [Concomitant]
  8. LISINOPRIL [Concomitant]
  9. LISINOPRIL HCTZ (PRINZIDE /00977901/) [Concomitant]
  10. HIZENTRA [Suspect]
  11. FEXOFENADINE HCL [Concomitant]
  12. EPIPEN [Concomitant]
  13. SYNTHROID [Concomitant]
  14. DIPHENHYDRAMINE HCL [Concomitant]
  15. PEPCID [Concomitant]
  16. CYMBALTA [Concomitant]
  17. WELLBUTRIN [Concomitant]
  18. BUSPIRONE (BUSIPRONE) [Concomitant]
  19. IBUPROFEN (IBUPROFEN) [Concomitant]
  20. ALBUTEROL [Concomitant]
  21. TYLENOL ES (PARACETAMOL) [Concomitant]

REACTIONS (1)
  - RESPIRATORY TRACT INFECTION [None]
